FAERS Safety Report 8799466 (Version 1)
Quarter: 2012Q4

REPORT INFORMATION
  Report Type: Spontaneous
  Country: DE (occurrence: None)
  Receive Date: 20120914
  Receipt Date: 20120914
  Transmission Date: 20130627
  Serious: Yes (Other)
  Sender: FDA-Public Use
  Company Number: 2012-003258

PATIENT
  Sex: Female

DRUGS (4)
  1. ACTONEL (RISEDRONATE SODIUM) TABLET, 35MG [Suspect]
     Dosage: once a weekly
     Route: 048
  2. CALCIUM (CALCIUM) [Concomitant]
  3. VITAMIN D	/00318501/ (COLECALCIFEROL) [Concomitant]
  4. ANALGESICS [Concomitant]

REACTIONS (11)
  - Cardiac disorder [None]
  - Respiratory disorder [None]
  - Metabolic disorder [None]
  - Hypokalaemia [None]
  - Skin injury [None]
  - Muscle spasms [None]
  - Muscular weakness [None]
  - Asthma [None]
  - Spinal fracture [None]
  - Vomiting [None]
  - Tooth infection [None]
